FAERS Safety Report 9231713 (Version 1)
Quarter: 2013Q2

REPORT INFORMATION
  Report Type: Spontaneous
  Country: EC (occurrence: EC)
  Receive Date: 20130415
  Receipt Date: 20130415
  Transmission Date: 20140414
  Serious: Yes (Death, Other)
  Sender: FDA-Public Use
  Company Number: EC-PFIZER INC-2013117487

PATIENT
  Age: 93 Year
  Sex: Female

DRUGS (1)
  1. NEURONTIN [Suspect]
     Dosage: 400 MG, 3X/DAY
     Route: 048

REACTIONS (2)
  - Head injury [Fatal]
  - Fall [Unknown]
